FAERS Safety Report 11787227 (Version 1)
Quarter: 2015Q4

REPORT INFORMATION
  Report Type: Spontaneous
  Country: JP (occurrence: JP)
  Receive Date: 20151130
  Receipt Date: 20151130
  Transmission Date: 20160305
  Serious: Yes (Other)
  Sender: FDA-Public Use
  Company Number: JP-SA-2015SA190371

PATIENT
  Age: 49 Year
  Sex: Female

DRUGS (1)
  1. MYSLEE [Suspect]
     Active Substance: ZOLPIDEM TARTRATE
     Route: 048
     Dates: start: 20151112, end: 20151112

REACTIONS (5)
  - Renal impairment [Unknown]
  - Overdose [Unknown]
  - Anuria [Unknown]
  - Blood pressure decreased [Unknown]
  - Somnolence [Unknown]

NARRATIVE: CASE EVENT DATE: 20151112
